FAERS Safety Report 24534954 (Version 1)
Quarter: 2024Q4

REPORT INFORMATION
  Report Type: Spontaneous
  Country: US (occurrence: US)
  Receive Date: 20241022
  Receipt Date: 20241022
  Transmission Date: 20250114
  Serious: Yes (Disabling)
  Sender: GLAXOSMITHKLINE
  Company Number: US-GSKCCFUS-Case-02128560_AE-117409

PATIENT

DRUGS (2)
  1. INCRUSE ELLIPTA [Suspect]
     Active Substance: UMECLIDINIUM BROMIDE
     Indication: Respiratory disorder
     Dosage: UNK UNK, 1D
     Route: 055
     Dates: start: 20240921, end: 20241010
  2. SEREVENT DISKUS [Suspect]
     Active Substance: SALMETEROL XINAFOATE
     Indication: Respiratory disorder
     Dosage: UNK UNK, BID
     Route: 055
     Dates: start: 20240821, end: 20240921

REACTIONS (5)
  - Arthralgia [Not Recovered/Not Resolved]
  - Myalgia [Not Recovered/Not Resolved]
  - Ocular hyperaemia [Not Recovered/Not Resolved]
  - Eye pruritus [Not Recovered/Not Resolved]
  - Drug ineffective [Unknown]

NARRATIVE: CASE EVENT DATE: 20240824
